FAERS Safety Report 6034317-4 (Version None)
Quarter: 2009Q1

REPORT INFORMATION
  Report Type: 
  Country: None (occurrence: None)
  Receive Date: 20090112
  Receipt Date: 20080516
  Transmission Date: 20090719
  Serious: No
  Sender: FDA-Public Use
  Company Number: US-ABBOTT-08P-163-0452395-00

PATIENT
  Sex: Male
  Weight: 74.91 kg

DRUGS (2)
  1. HYTRIN [Suspect]
     Indication: PROSTATIC DISORDER
     Dosage: STARED WITH 1MG, THEN 2MG AND NOW 5MG FOR LAST TWO DAYS
     Route: 048
     Dates: start: 20080502
  2. A BUNCH AND I DON'T WANT TO GET INTO IT [Concomitant]
     Indication: DRUG USE FOR UNKNOWN INDICATION

REACTIONS (1)
  - BLOOD GLUCOSE INCREASED [None]
